FAERS Safety Report 4558354-1 (Version None)
Quarter: 2005Q1

REPORT INFORMATION
  Report Type: 
  Country: None (occurrence: None)
  Receive Date: 20050103
  Receipt Date: 20041012
  Transmission Date: 20050727
  Serious: Yes (Other)
  Sender: FDA-Public Use
  Company Number: 2004UW21305

PATIENT
  Age: 38 Year
  Sex: Female
  Weight: 66.224 kg

DRUGS (6)
  1. CRESTOR [Suspect]
     Indication: BLOOD CHOLESTEROL INCREASED
     Dosage: 20 MG QD PO
     Route: 048
     Dates: start: 20040923
  2. ALEVE [Concomitant]
  3. KLONOPIN [Concomitant]
  4. ASPIRIN [Concomitant]
  5. POTASSIUM CITRATE [Concomitant]
  6. TRILEPTAL [Concomitant]

REACTIONS (3)
  - BACK PAIN [None]
  - CONSTIPATION [None]
  - FAECES DISCOLOURED [None]
